FAERS Safety Report 25574717 (Version 1)
Quarter: 2025Q3

REPORT INFORMATION
  Report Type: Spontaneous
  Country: IN (occurrence: IN)
  Receive Date: 20250718
  Receipt Date: 20250718
  Transmission Date: 20251020
  Serious: Yes (Hospitalization, Other)
  Sender: AMNEAL
  Company Number: IN-AMNEAL PHARMACEUTICALS-2025-AMRX-02646

PATIENT
  Age: 55 Year
  Sex: Male

DRUGS (1)
  1. BACLOFEN [Suspect]
     Active Substance: BACLOFEN
     Indication: Hiccups
     Dosage: 10 MILLIGRAM, 3X/DAY(TABLET)
     Route: 065
     Dates: start: 202501, end: 202501

REACTIONS (3)
  - Toxic encephalopathy [Recovered/Resolved]
  - Coma [Unknown]
  - Toxicity to various agents [Recovered/Resolved]

NARRATIVE: CASE EVENT DATE: 20250101
